FAERS Safety Report 7671350-0 (Version None)
Quarter: 2011Q3

REPORT INFORMATION
  Report Type: 
  Country: None (occurrence: None)
  Receive Date: 20110809
  Receipt Date: 20110710
  Transmission Date: 20111222
  Serious: No
  Sender: FDA-Public Use
  Company Number: US-BAYER-2011-060487

PATIENT
  Sex: Female

DRUGS (3)
  1. ADVIL LIQUI-GELS [Concomitant]
  2. ALEVE (CAPLET) [Suspect]
     Route: 048
  3. MOTRIL [Concomitant]
     Dosage: UNK DF, UNK

REACTIONS (1)
  - NO ADVERSE EVENT [None]
